FAERS Safety Report 4479360-1 (Version None)
Quarter: 2004Q4

REPORT INFORMATION
  Report Type: 
  Country: None (occurrence: None)
  Receive Date: 20041020
  Receipt Date: 20041014
  Transmission Date: 20050328
  Serious: Yes (Hospitalization)
  Sender: FDA-Public Use
  Company Number: US-JNJFOC-20041004688

PATIENT
  Sex: Male

DRUGS (9)
  1. DURAGESIC [Suspect]
     Route: 062
     Dates: start: 20040401
  2. PERCOCET [Concomitant]
     Route: 049
  3. PERCOCET [Concomitant]
     Dosage: 1 TABLET 2 TIMES A DAY AS NEEDED
     Route: 049
  4. KLONOPIN [Concomitant]
     Dosage: 1 TABLET 2 TIMES A DAY
  5. PHENERGAN [Concomitant]
     Dosage: 1 TABLET AS NEEDED
  6. DIAZAPAM [Concomitant]
     Dosage: 5 MG ONCE A DAY AS NEEDED
  7. PREVACID [Concomitant]
  8. PANCREASE [Concomitant]
     Dosage: 1 TABLET THREE TIMES A DAY AS NEEDED
  9. LIDODERM [Concomitant]
     Route: 062

REACTIONS (5)
  - CHROMATURIA [None]
  - DRUG TOXICITY [None]
  - NASOPHARYNGITIS [None]
  - NAUSEA [None]
  - VIRAL INFECTION [None]
